FAERS Safety Report 11889299 (Version 1)
Quarter: 2016Q1

REPORT INFORMATION
  Report Type: Spontaneous
  Country: US (occurrence: US)
  Receive Date: 20160105
  Receipt Date: 20160105
  Transmission Date: 20160526
  Serious: No
  Sender: FDA-Public Use
  Company Number: US-TEVA-620818USA

PATIENT
  Age: 50 Year
  Sex: Female

DRUGS (5)
  1. SOMA [Concomitant]
     Active Substance: CARISOPRODOL
  2. FENTORA [Suspect]
     Active Substance: FENTANYL CITRATE
     Route: 048
     Dates: start: 201512
  3. FENTANYL. [Concomitant]
     Active Substance: FENTANYL
     Indication: PAIN
     Route: 062
  4. FENTORA [Suspect]
     Active Substance: FENTANYL CITRATE
     Indication: PAIN
     Route: 048
     Dates: start: 201510, end: 201510
  5. ZOLPIDEM [Concomitant]
     Active Substance: ZOLPIDEM\ZOLPIDEM TARTRATE
     Indication: INSOMNIA

REACTIONS (3)
  - Mouth ulceration [Recovered/Resolved]
  - Mouth ulceration [Not Recovered/Not Resolved]
  - Product use issue [Unknown]

NARRATIVE: CASE EVENT DATE: 201510
